FAERS Safety Report 9014223 (Version 1)
Quarter: 2013Q1

REPORT INFORMATION
  Report Type: Spontaneous
  Country: GB (occurrence: GB)
  Receive Date: 20130115
  Receipt Date: 20130115
  Transmission Date: 20140127
  Serious: Yes (Other)
  Sender: FDA-Public Use
  Company Number: GB-UCBSA-073941

PATIENT
  Age: 70 Year
  Sex: Female

DRUGS (8)
  1. NEUPRO [Suspect]
     Dosage: NO. OF INTAKES PER DAY: 1/12, PATCH
     Route: 061
     Dates: start: 20121106, end: 20121217
  2. NEUPRO [Suspect]
     Dosage: PATCH
     Route: 061
     Dates: start: 20121218, end: 20121223
  3. CODEINE [Concomitant]
     Dosage: UNKNOWN DOSE; OCCASIONAL
  4. ASPIRIN [Concomitant]
     Indication: CARDIAC DISORDER
     Dosage: 1-0-0
  5. SOLATOL [Concomitant]
     Indication: CARDIAC DISORDER
     Dosage: 1-0-0
  6. VITAMIN B12 [Concomitant]
     Indication: HYPOVITAMINOSIS
     Dosage: NUMDER OF INTAKES (PER DAY): 3/12
  7. DIAZEPAM [Concomitant]
     Dosage: OCCASIONAL
  8. EZETIMIBE [Concomitant]
     Dosage: 10 MG PER DOSE

REACTIONS (4)
  - Vision blurred [Recovered/Resolved]
  - Fall [Unknown]
  - Balance disorder [Unknown]
  - Drug hypersensitivity [Unknown]
